FAERS Safety Report 11539016 (Version 2)
Quarter: 2015Q4

REPORT INFORMATION
  Report Type: Report from Study
  Country: CA (occurrence: CA)
  Receive Date: 20150923
  Receipt Date: 20151012
  Transmission Date: 20160304
  Serious: Yes (Other)
  Sender: FDA-Public Use
  Company Number: CA-ROCHE-ITM201504IM013354

PATIENT
  Age: 70 Year
  Sex: Female
  Weight: 49.4 kg

DRUGS (8)
  1. ESBRIET [Suspect]
     Active Substance: PIRFENIDONE
     Indication: IDIOPATHIC PULMONARY FIBROSIS
     Route: 048
     Dates: start: 20150215
  2. LIPITOR [Concomitant]
     Active Substance: ATORVASTATIN CALCIUM
  3. SIMBICORT [Concomitant]
     Active Substance: BUDESONIDE\FORMOTEROL FUMARATE
  4. ESBRIET [Suspect]
     Active Substance: PIRFENIDONE
     Route: 048
     Dates: start: 201503, end: 20150710
  5. BENICAR HCT [Concomitant]
     Active Substance: HYDROCHLOROTHIAZIDE\OLMESARTAN MEDOXOMIL
  6. RABEPRAZOLE [Concomitant]
     Active Substance: RABEPRAZOLE
  7. NAC (ACETYLCYSTEINE) [Concomitant]
  8. OFEV [Concomitant]
     Active Substance: NINTEDANIB

REACTIONS (4)
  - Hepatic enzyme increased [Unknown]
  - Lethargy [Not Recovered/Not Resolved]
  - Fatigue [Not Recovered/Not Resolved]
  - Nausea [Not Recovered/Not Resolved]

NARRATIVE: CASE EVENT DATE: 201503
